FAERS Safety Report 6097029-7 (Version None)
Quarter: 2009Q1

REPORT INFORMATION
  Report Type: 
  Country: None (occurrence: None)
  Receive Date: 20090226
  Receipt Date: 20090226
  Transmission Date: 20090719
  Serious: Yes (Other)
  Sender: FDA-Public Use
  Company Number: None

PATIENT
  Sex: Female
  Weight: 11.8 kg

DRUGS (2)
  1. LEVETIRACETAM [Suspect]
     Indication: EPILEPSY
     Dosage: 1 1/2 TABLET BID P.O.
     Route: 048
     Dates: start: 20081201
  2. TOPAMAX [Concomitant]

REACTIONS (4)
  - CRYING [None]
  - PRODUCT QUALITY ISSUE [None]
  - SCREAMING [None]
  - TREMOR [None]
